FAERS Safety Report 21389011 (Version 2)
Quarter: 2022Q4

REPORT INFORMATION
  Report Type: Spontaneous
  Country: US (occurrence: US)
  Receive Date: 20220929
  Receipt Date: 20221010
  Transmission Date: 20230113
  Serious: No
  Sender: FDA-Public Use
  Company Number: US-AIMMUNE THERAPEUTICS, INC.-2022AIMT02530

PATIENT

DRUGS (4)
  1. PALFORZIA [Suspect]
     Active Substance: PEANUT
     Indication: Food allergy
     Dosage: IDE (0.5MG-6MG), ONCE
     Route: 048
     Dates: start: 20220622, end: 20220622
  2. PALFORZIA [Suspect]
     Active Substance: PEANUT
     Dosage: 80 MG, ONCE, LAST DOSE PRIOR TO EVENT ONSET
     Route: 048
     Dates: start: 20220909, end: 20220909
  3. PALFORZIA [Suspect]
     Active Substance: PEANUT
     Dosage: 40 MG, 1X/DAY, DECREASED DOSE
     Route: 048
     Dates: start: 20220910, end: 20220925
  4. PALFORZIA [Suspect]
     Active Substance: PEANUT
     Dosage: 80 MG, 1X/DAY, RE-STARTED DOSE LEVEL
     Route: 048
     Dates: start: 20220926

REACTIONS (4)
  - Intentional underdose [Recovered/Resolved]
  - Retching [Recovered/Resolved]
  - Product use complaint [Recovered/Resolved]
  - Vomiting [Recovered/Resolved]

NARRATIVE: CASE EVENT DATE: 20220909
